FAERS Safety Report 23561904 (Version 2)
Quarter: 2024Q1

REPORT INFORMATION
  Report Type: Spontaneous
  Country: US (occurrence: US)
  Receive Date: 20240225
  Receipt Date: 20240303
  Transmission Date: 20240410
  Serious: Yes (Hospitalization, Other)
  Sender: FDA-Public Use
  Company Number: US-BRISTOL-MYERS SQUIBB COMPANY-2024-025226

PATIENT
  Age: 78 Year
  Sex: Male

DRUGS (1)
  1. REVLIMID [Suspect]
     Active Substance: LENALIDOMIDE
     Indication: Plasma cell myeloma
     Dosage: TAKE 1 CAPSULE BY MOUTH ONCE A DAY ON DAYS 1-14 OF A 28 DAY CYCLE
     Route: 048
     Dates: start: 20240216, end: 20240227

REACTIONS (14)
  - Bone pain [Unknown]
  - Arthralgia [Unknown]
  - Cough [Unknown]
  - Spinal disorder [Unknown]
  - Back pain [Unknown]
  - Fatigue [Unknown]
  - Diarrhoea [Unknown]
  - Clostridium difficile infection [Unknown]
  - Neuralgia [Unknown]
  - Neck pain [Unknown]
  - Therapy interrupted [Unknown]
  - Tissue injury [Unknown]
  - Pain [Unknown]
  - Off label use [Unknown]
